FAERS Safety Report 24066919 (Version 1)
Quarter: 2024Q3

REPORT INFORMATION
  Report Type: Spontaneous
  Country: US (occurrence: US)
  Receive Date: 20240709
  Receipt Date: 20240709
  Transmission Date: 20241017
  Serious: No
  Sender: BIOGEN
  Company Number: US-BIOGEN-2024BI01272503

PATIENT

DRUGS (1)
  1. SPINRAZA [Suspect]
     Active Substance: NUSINERSEN
     Indication: Product used for unknown indication
     Route: 050

REACTIONS (3)
  - Procedural pain [Recovered/Resolved]
  - Injection site bruising [Recovered/Resolved]
  - Injection site mass [Recovered/Resolved]

NARRATIVE: CASE EVENT DATE: 20240628
